FAERS Safety Report 13600265 (Version 1)
Quarter: 2017Q2

REPORT INFORMATION
  Report Type: Spontaneous
  Country: US (occurrence: US)
  Receive Date: 20170531
  Receipt Date: 20170531
  Transmission Date: 20170830
  Serious: Yes (Hospitalization)
  Sender: FDA-Public Use
  Company Number: None

PATIENT
  Age: 67 Year
  Sex: Male

DRUGS (1)
  1. DABIGATRAN [Suspect]
     Active Substance: DABIGATRAN
     Indication: ATRIAL FIBRILLATION
     Dates: start: 20130819, end: 20170413

REACTIONS (5)
  - Melaena [None]
  - Gastric ulcer [None]
  - Gastric haemorrhage [None]
  - Haematemesis [None]
  - Haemoglobin decreased [None]

NARRATIVE: CASE EVENT DATE: 20170414
